FAERS Safety Report 23134291 (Version 2)
Quarter: 2023Q4

REPORT INFORMATION
  Report Type: Spontaneous
  Country: US (occurrence: US)
  Receive Date: 20231101
  Receipt Date: 20231113
  Transmission Date: 20240110
  Serious: Yes (Death, Hospitalization)
  Sender: FDA-Public Use
  Company Number: US-TEVA-2023-US-2939939

PATIENT
  Sex: Female
  Weight: 1.73 kg

DRUGS (13)
  1. EPINEPHRINE [Suspect]
     Active Substance: EPINEPHRINE
     Indication: Cardiopulmonary failure
     Route: 065
  2. EPINEPHRINE [Suspect]
     Active Substance: EPINEPHRINE
     Indication: Resuscitation
  3. ISOPROTERENOL [Suspect]
     Active Substance: ISOPROTERENOL
     Indication: Sinus bradycardia
     Dosage: RECEIVED DRIP
     Route: 065
  4. ATROPINE [Suspect]
     Active Substance: ATROPINE\ATROPINE SULFATE
     Indication: Cardiopulmonary failure
     Route: 065
  5. ATROPINE [Suspect]
     Active Substance: ATROPINE\ATROPINE SULFATE
     Indication: Resuscitation
  6. CALCIUM GLUCONATE [Suspect]
     Active Substance: CALCIUM GLUCONATE
     Indication: Cardiopulmonary failure
     Route: 065
  7. CALCIUM GLUCONATE [Suspect]
     Active Substance: CALCIUM GLUCONATE
     Indication: Resuscitation
  8. INSULIN NOS [Suspect]
     Active Substance: INSULIN NOS
     Indication: Cardiopulmonary failure
     Route: 065
  9. INSULIN NOS [Suspect]
     Active Substance: INSULIN NOS
     Indication: Resuscitation
  10. DEXTROSE [Suspect]
     Active Substance: DEXTROSE\DEXTROSE MONOHYDRATE
     Indication: Cardiopulmonary failure
     Route: 065
  11. DEXTROSE [Suspect]
     Active Substance: DEXTROSE\DEXTROSE MONOHYDRATE
     Indication: Resuscitation
  12. SODIUM BICARBONATE [Suspect]
     Active Substance: SODIUM BICARBONATE
     Indication: Cardiopulmonary failure
     Route: 065
  13. SODIUM BICARBONATE [Suspect]
     Active Substance: SODIUM BICARBONATE
     Indication: Resuscitation

REACTIONS (1)
  - Drug ineffective [Fatal]
